FAERS Safety Report 14829201 (Version 1)
Quarter: 2018Q2

REPORT INFORMATION
  Report Type: Spontaneous
  Country: AE (occurrence: AE)
  Receive Date: 20180407
  Receipt Date: 20180407
  Transmission Date: 20180711
  Serious: Yes (Life-Threatening, Other)
  Sender: FDA-Public Use
  Company Number: None

PATIENT
  Age: 29 Year
  Sex: Male
  Weight: 60 kg

DRUGS (7)
  1. ROACCUTANE [Suspect]
     Active Substance: ISOTRETINOIN
     Indication: ACNE
     Dosage: ?          QUANTITY:1 CAPSULE(S);?
     Route: 048
     Dates: start: 20161101, end: 20170530
  2. PREDNISONE. [Concomitant]
     Active Substance: PREDNISONE
  3. FLUTIFORM [Concomitant]
     Active Substance: FLUTICASONE PROPIONATE\FORMOTEROL FUMARATE
  4. IMURAN [Concomitant]
     Active Substance: AZATHIOPRINE
  5. STALORAL [Concomitant]
     Active Substance: ALLERGENIC EXTRACTS
  6. AVAMYS NASAL DROPS [Concomitant]
  7. CALTRATE (CALCIUM + VIT D) [Concomitant]

REACTIONS (9)
  - Fatigue [None]
  - Abdominal pain upper [None]
  - Dizziness [None]
  - Chest discomfort [None]
  - Back pain [None]
  - Headache [None]
  - Tachycardia [None]
  - Vision blurred [None]
  - Granulomatosis with polyangiitis [None]

NARRATIVE: CASE EVENT DATE: 20170801
